FAERS Safety Report 9429153 (Version 2)
Quarter: 2013Q4

REPORT INFORMATION
  Report Type: Report from Study
  Country: US (occurrence: US)
  Receive Date: 20130730
  Receipt Date: 20131111
  Transmission Date: 20140711
  Serious: Yes (Other)
  Sender: FDA-Public Use
  Company Number: US-ELI_LILLY_AND_COMPANY-US201307007796

PATIENT
  Sex: Female

DRUGS (1)
  1. DULOXETINE HYDROCHLORIDE [Suspect]
     Indication: PREMENSTRUAL SYNDROME
     Dosage: 60 MG, QD
     Dates: end: 201307

REACTIONS (5)
  - Suicidal ideation [Unknown]
  - Fear [Unknown]
  - Crying [Unknown]
  - Drug withdrawal syndrome [Unknown]
  - Off label use [Unknown]
